FAERS Safety Report 21597602 (Version 1)
Quarter: 2022Q4

REPORT INFORMATION
  Report Type: Spontaneous
  Country: FI (occurrence: FI)
  Receive Date: 20221115
  Receipt Date: 20221115
  Transmission Date: 20230113
  Serious: Yes (Hospitalization, Other)
  Sender: FDA-Public Use
  Company Number: None

PATIENT

DRUGS (2)
  1. CRYSVITA [Suspect]
     Active Substance: BUROSUMAB-TWZA
     Indication: Hereditary hypophosphataemic rickets
     Dosage: UNK
     Route: 058
     Dates: start: 202202
  2. NORDITROPIN [Concomitant]
     Active Substance: SOMATROPIN
     Indication: Blood growth hormone
     Dosage: 1.2 MG, QD
     Route: 058

REACTIONS (6)
  - Blood phosphorus decreased [Recovering/Resolving]
  - Staphylococcal sepsis [Recovering/Resolving]
  - Bone abscess [Recovering/Resolving]
  - Diarrhoea [Recovering/Resolving]
  - Osteomyelitis [Recovering/Resolving]
  - Inadequate aseptic technique in use of product [Recovering/Resolving]

NARRATIVE: CASE EVENT DATE: 20221002
